FAERS Safety Report 14202318 (Version 7)
Quarter: 2018Q1

REPORT INFORMATION
  Report Type: Spontaneous
  Country: US (occurrence: US)
  Receive Date: 20171117
  Receipt Date: 20180316
  Transmission Date: 20180508
  Serious: Yes (Death, Hospitalization, Disabling, Other)
  Sender: FDA-Public Use
  Company Number: US-ACTELION-A-US2017-162708

PATIENT
  Age: 54 Year
  Sex: Female

DRUGS (4)
  1. VIMPAT [Concomitant]
     Active Substance: LACOSAMIDE
  2. TRACLEER [Suspect]
     Active Substance: BOSENTAN
     Indication: PULMONARY ARTERIAL HYPERTENSION
     Dosage: 125 MG, BID
     Route: 048
     Dates: start: 20060301, end: 20180309
  3. KEPPRA [Concomitant]
     Active Substance: LEVETIRACETAM
  4. ORENITRAM [Suspect]
     Active Substance: TREPROSTINIL
     Indication: PRODUCT USED FOR UNKNOWN INDICATION
     Route: 065

REACTIONS (17)
  - Internal haemorrhage [Unknown]
  - Cardiac failure [Fatal]
  - Flushing [Not Recovered/Not Resolved]
  - Urinary tract infection [Unknown]
  - Fatigue [Unknown]
  - Dyspnoea [Unknown]
  - Transfusion [Unknown]
  - Nausea [Unknown]
  - Haemoglobin decreased [Unknown]
  - Diarrhoea [Unknown]
  - Gastric disorder [Unknown]
  - Renal disorder [Unknown]
  - Tremor [Not Recovered/Not Resolved]
  - Syncope [Unknown]
  - Arthralgia [Unknown]
  - Rhinorrhoea [Unknown]
  - Weight increased [Recovering/Resolving]

NARRATIVE: CASE EVENT DATE: 20171205
